FAERS Safety Report 11267983 (Version 1)
Quarter: 2015Q3

REPORT INFORMATION
  Report Type: Spontaneous
  Country: US (occurrence: US)
  Receive Date: 20150713
  Receipt Date: 20150713
  Transmission Date: 20151125
  Serious: No
  Sender: FDA-Public Use
  Company Number: US-TAKEDA-2014MPI001078

PATIENT
  Sex: Female
  Weight: 58.96 kg

DRUGS (9)
  1. VITAMIN B [Concomitant]
     Active Substance: VITAMIN B
  2. DEXAMETHASONE. [Concomitant]
     Active Substance: DEXAMETHASONE
  3. LYRICA [Concomitant]
     Active Substance: PREGABALIN
  4. LIDOCAINE. [Concomitant]
     Active Substance: LIDOCAINE
     Dosage: UNK
     Dates: start: 20140403
  5. REVLIMID [Concomitant]
     Active Substance: LENALIDOMIDE
  6. FIORICET [Concomitant]
     Active Substance: ACETAMINOPHEN\BUTALBITAL\CAFFEINE
  7. OXYCODONE [Concomitant]
     Active Substance: OXYCODONE
  8. VELCADE [Suspect]
     Active Substance: BORTEZOMIB
     Indication: PLASMA CELL MYELOMA
     Dosage: UNK
     Dates: end: 201402
  9. NEURONTIN [Concomitant]
     Active Substance: GABAPENTIN

REACTIONS (1)
  - Neuropathy peripheral [Not Recovered/Not Resolved]
